FAERS Safety Report 9725813 (Version 1)
Quarter: 2013Q4

REPORT INFORMATION
  Report Type: Spontaneous
  Country: US (occurrence: None)
  Receive Date: 20131129
  Receipt Date: 20131129
  Transmission Date: 20140711
  Serious: Yes (Death)
  Sender: FDA-Public Use
  Company Number: SYM-2013-13130

PATIENT
  Age: 51 Year
  Sex: Female

DRUGS (2)
  1. 5-FU [Suspect]
     Indication: ADENOCARCINOMA
     Dosage: INTRAVENOUS
     Route: 042
  2. LEUCOVORIN [Suspect]
     Indication: ADENOCARCINOMA

REACTIONS (11)
  - Palmar-plantar erythrodysaesthesia syndrome [None]
  - Nausea [None]
  - Vomiting [None]
  - Adenocarcinoma [None]
  - Mental status changes [None]
  - Pulmonary oedema [None]
  - Pleural effusion [None]
  - Renal failure [None]
  - Pancytopenia [None]
  - Pyrexia [None]
  - Disease progression [None]
